FAERS Safety Report 18159904 (Version 2)
Quarter: 2020Q4

REPORT INFORMATION
  Report Type: Spontaneous
  Country: US (occurrence: US)
  Receive Date: 20200818
  Receipt Date: 20201216
  Transmission Date: 20210113
  Serious: No
  Sender: FDA-Public Use
  Company Number: US-CELLTRION INC.-2020US024805

PATIENT

DRUGS (2)
  1. TRUXIMA [Suspect]
     Active Substance: RITUXIMAB-ABBS
     Indication: RHEUMATOID ARTHRITIS
  2. TRUXIMA [Suspect]
     Active Substance: RITUXIMAB-ABBS
     Indication: INTERSTITIAL LUNG DISEASE
     Dosage: 1000 MG DAY 0, REPEAT IN 2 WEEKS; 1000 MG REPEAT THOSE EVERY 16 WEEKS

REACTIONS (1)
  - Off label use [Unknown]
